FAERS Safety Report 14444392 (Version 1)
Quarter: 2018Q1

REPORT INFORMATION
  Report Type: Spontaneous
  Country: US (occurrence: US)
  Receive Date: 20180125
  Receipt Date: 20180125
  Transmission Date: 20180509
  Serious: Yes (Other)
  Sender: FDA-Public Use
  Company Number: None

PATIENT
  Age: 43 Year
  Sex: Female
  Weight: 67.95 kg

DRUGS (12)
  1. ESTRADIOL. [Concomitant]
     Active Substance: ESTRADIOL
  2. AMBIEN [Concomitant]
     Active Substance: ZOLPIDEM TARTRATE
  3. VITAMIN E [Concomitant]
     Active Substance: .ALPHA.-TOCOPHEROL
  4. BERBERINE [Concomitant]
     Active Substance: BERBERINE
  5. ENABLEX [Concomitant]
     Active Substance: DARIFENACIN HYDROBROMIDE
  6. VITAMIN C [Concomitant]
     Active Substance: ASCORBIC ACID
  7. KRILL OIL [Concomitant]
     Active Substance: DIETARY SUPPLEMENT
  8. CALCIUM [Concomitant]
     Active Substance: CALCIUM
  9. LEMTRADA [Suspect]
     Active Substance: ALEMTUZUMAB
     Indication: MULTIPLE SCLEROSIS
     Dosage: OTHER FREQUENCY:3 DAYS FOR 2ND IV;?
     Route: 042
     Dates: start: 20180117, end: 20180119
  10. PREDNISONE. [Concomitant]
     Active Substance: PREDNISONE
  11. AMPYRA [Concomitant]
     Active Substance: DALFAMPRIDINE
  12. VITAMIN D [Concomitant]
     Active Substance: CHOLECALCIFEROL

REACTIONS (2)
  - Arthralgia [None]
  - Contusion [None]

NARRATIVE: CASE EVENT DATE: 20180120
